FAERS Safety Report 10786377 (Version 3)
Quarter: 2015Q2

REPORT INFORMATION
  Report Type: Report from Study
  Country: GB (occurrence: GB)
  Receive Date: 20150211
  Receipt Date: 20150527
  Transmission Date: 20150821
  Serious: Yes (Hospitalization)
  Sender: FDA-Public Use
  Company Number: GB-BAYER-2014-181842

PATIENT
  Age: 8 Year
  Sex: Female
  Weight: 27.6 kg

DRUGS (8)
  1. REGORAFENIB [Suspect]
     Active Substance: REGORAFENIB
     Indication: EWING^S SARCOMA RECURRENT
     Dosage: DAILY DOSE 60 MG
     Route: 048
     Dates: start: 20150127
  2. FENTANYL. [Concomitant]
     Active Substance: FENTANYL
     Indication: PAIN
     Dosage: 6 MCG/H
     Route: 062
  3. MOVICOL [MACROGOL,POTASSIUM CHLORIDE,SODIUM BICARBONATE] [Concomitant]
     Indication: CONSTIPATION
     Dosage: TOTAL DAILY DOSE 2 SACHETS
     Route: 048
     Dates: start: 20141207
  4. REGORAFENIB [Suspect]
     Active Substance: REGORAFENIB
     Indication: EWING^S SARCOMA RECURRENT
     Dosage: 80 MG, QD
     Route: 048
     Dates: start: 20141202, end: 20141206
  5. ORAMORPH SR SUSTAINED RELEASE [Concomitant]
     Active Substance: MORPHINE SULFATE
     Indication: PAIN
     Dosage: DAILY DOSE 18 MG
     Route: 048
     Dates: start: 20141203, end: 20141209
  6. MORPHINE [Concomitant]
     Active Substance: MORPHINE
     Indication: PAIN
     Dosage: DAILY DOSE 18 MG
     Route: 048
     Dates: start: 20150203
  7. REGORAFENIB [Suspect]
     Active Substance: REGORAFENIB
     Indication: EWING^S SARCOMA RECURRENT
     Dosage: 80 MG
     Route: 048
     Dates: start: 20141210, end: 20141222
  8. FENTANYL. [Concomitant]
     Active Substance: FENTANYL
     Indication: PAIN
     Dosage: 12 MCG/H
     Route: 062
     Dates: start: 20141210, end: 20141220

REACTIONS (3)
  - Pyrexia [Recovered/Resolved]
  - Lung infection [Recovered/Resolved]
  - Pyrexia [Recovered/Resolved]

NARRATIVE: CASE EVENT DATE: 20141204
